FAERS Safety Report 7216121-4 (Version None)
Quarter: 2011Q1

REPORT INFORMATION
  Report Type: 
  Country: None (occurrence: None)
  Receive Date: 20110105
  Receipt Date: 20110105
  Transmission Date: 20110831
  Serious: Yes (Hospitalization)
  Sender: FDA-Public Use
  Company Number: None

PATIENT
  Age: 40 Year
  Sex: Female
  Weight: 82.1011 kg

DRUGS (2)
  1. DIFLUNISAL [Suspect]
     Indication: INFLAMMATION
     Dosage: 500 MG 2 TIMES A DAY PO
     Route: 048
     Dates: start: 20101219, end: 20110101
  2. DIFLUNISAL [Suspect]
     Indication: PAIN
     Dosage: 500 MG 2 TIMES A DAY PO
     Route: 048
     Dates: start: 20101219, end: 20110101

REACTIONS (6)
  - WEIGHT INCREASED [None]
  - NAUSEA [None]
  - FLUID RETENTION [None]
  - DIZZINESS [None]
  - SYNCOPE [None]
  - FEELING ABNORMAL [None]
